FAERS Safety Report 10506175 (Version 3)
Quarter: 2014Q4

REPORT INFORMATION
  Report Type: Spontaneous
  Country: GB (occurrence: GB)
  Receive Date: 20141009
  Receipt Date: 20141103
  Transmission Date: 20150528
  Serious: Yes (Other)
  Sender: FDA-Public Use
  Company Number: GB-ABBVIE-13P-167-1175540-00

PATIENT
  Age: 38 Year
  Sex: Male
  Weight: 78 kg

DRUGS (5)
  1. ZOPICLONE [Concomitant]
     Active Substance: ZOPICLONE
     Indication: DEPRESSION
     Route: 048
     Dates: start: 20140617
  2. LANSOPRAZOLE. [Concomitant]
     Active Substance: LANSOPRAZOLE
     Indication: ABDOMINAL PAIN UPPER
     Route: 048
     Dates: start: 20140602
  3. HUMIRA [Suspect]
     Active Substance: ADALIMUMAB
     Indication: PSORIASIS
     Route: 058
     Dates: start: 20130604
  4. NAPROXEN. [Concomitant]
     Active Substance: NAPROXEN
     Indication: ARTHRALGIA
     Route: 048
     Dates: start: 20140602
  5. ADCAL D3 [Concomitant]
     Active Substance: CALCIUM CARBONATE\CHOLECALCIFEROL
     Indication: VITAMIN D DEFICIENCY
     Route: 048
     Dates: start: 20140520

REACTIONS (7)
  - Fatigue [Unknown]
  - Dyspnoea [Recovered/Resolved]
  - Alanine aminotransferase increased [Unknown]
  - Heart rate increased [Not Recovered/Not Resolved]
  - Arthralgia [Not Recovered/Not Resolved]
  - Palpitations [Recovered/Resolved]
  - Chest pain [Not Recovered/Not Resolved]

NARRATIVE: CASE EVENT DATE: 20131215
